FAERS Safety Report 23715552 (Version 1)
Quarter: 2024Q2

REPORT INFORMATION
  Report Type: Other
  Country: US (occurrence: US)
  Receive Date: 20240408
  Receipt Date: 20240408
  Transmission Date: 20240717
  Serious: Yes (Hospitalization, Disabling, Other)
  Sender: FDA-Public Use
  Company Number: US-DEXPHARM-2024-0853

PATIENT
  Age: 59 Year
  Sex: Male

DRUGS (5)
  1. OMEPRAZOLE [Suspect]
     Active Substance: OMEPRAZOLE
     Indication: Prophylaxis against gastrointestinal ulcer
     Dosage: 20 MG DAILY
  2. AMLODIPINE [Concomitant]
     Active Substance: AMLODIPINE BESYLATE
  3. ATORVASTATIN [Concomitant]
     Active Substance: ATORVASTATIN
  4. URSODIOL [Concomitant]
     Active Substance: URSODIOL
  5. Budesonide-formoterol fumarate [Concomitant]
     Route: 050

REACTIONS (1)
  - Tubulointerstitial nephritis [Not Recovered/Not Resolved]
